FAERS Safety Report 4927546-1 (Version None)
Quarter: 2006Q1

REPORT INFORMATION
  Report Type: 
  Country: None (occurrence: None)
  Receive Date: 20060228
  Receipt Date: 20051003
  Transmission Date: 20060701
  Serious: Yes (Hospitalization)
  Sender: FDA-Public Use
  Company Number: US-MERCK-0510USA02670

PATIENT
  Age: 38 Year
  Sex: Female

DRUGS (2)
  1. VIOXX [Suspect]
     Route: 048
  2. VIOXX [Suspect]
     Route: 048

REACTIONS (7)
  - ABDOMINAL ABSCESS [None]
  - ADVERSE EVENT [None]
  - ANAEMIA [None]
  - ASTHMA [None]
  - CARDIOVASCULAR DISORDER [None]
  - CELLULITIS [None]
  - COLONIC FISTULA [None]
